FAERS Safety Report 10379873 (Version 6)
Quarter: 2015Q1

REPORT INFORMATION
  Report Type: Spontaneous
  Country: JP (occurrence: JP)
  Receive Date: 20140812
  Receipt Date: 20150122
  Transmission Date: 20150720
  Serious: Yes (Other)
  Sender: FDA-Public Use
  Company Number: JP-GILEAD-2014-0107128

PATIENT
  Age: 63 Year
  Sex: Female

DRUGS (16)
  1. ADEFOVIR DIPIVOXIL. [Suspect]
     Active Substance: ADEFOVIR DIPIVOXIL
     Indication: HEPATITIS B
     Dosage: 10 MG, QD
     Route: 048
     Dates: start: 20120622, end: 20140430
  2. ASPARA POTASSIUM [Concomitant]
     Active Substance: POTASSIUM ASPARTATE
     Dosage: UNK
  3. ALFAROL [Concomitant]
     Active Substance: ALFACALCIDOL
     Dosage: UNK
  4. FAMOTIDINE. [Concomitant]
     Active Substance: FAMOTIDINE
     Dosage: 20 MG, QD
  5. PREDNISOLONE. [Concomitant]
     Active Substance: PREDNISOLONE
     Dosage: UNK
  6. DIART [Concomitant]
     Active Substance: AZOSEMIDE
     Dosage: 30 MG, QD
  7. ADEFOVIR DIPIVOXIL. [Suspect]
     Active Substance: ADEFOVIR DIPIVOXIL
     Dosage: 10 MG, Z
     Route: 048
     Dates: start: 20141002
  8. NEUROTROPIN [Concomitant]
     Active Substance: NEUROTROPIN
     Dosage: UNK
  9. ACECOL TABLET (JAPAN) [Concomitant]
     Dosage: 1 MG, QD
  10. BARACLUDE [Concomitant]
     Active Substance: ENTECAVIR
     Indication: HEPATITIS B
     Dosage: 0.5 MG, QD
     Route: 048
     Dates: start: 20111216
  11. GLAKAY [Concomitant]
     Dosage: UNK
  12. FAMOTIDINE. [Concomitant]
     Active Substance: FAMOTIDINE
     Dosage: 20 MG, QD
  13. IMURAN [Concomitant]
     Active Substance: AZATHIOPRINE
     Dosage: 50 MG, QD
  14. PREDNISOLONE. [Concomitant]
     Active Substance: PREDNISOLONE
     Dosage: UNK
  15. ADEFOVIR DIPIVOXIL. [Suspect]
     Active Substance: ADEFOVIR DIPIVOXIL
     Indication: HEPATITIS B
     Dosage: 10 MG, QOD
     Route: 048
     Dates: start: 20140507, end: 20141001
  16. BARACLUDE [Concomitant]
     Active Substance: ENTECAVIR
     Dosage: 1 MG, QD
     Route: 048
     Dates: start: 20120330

REACTIONS (6)
  - Fanconi syndrome acquired [Recovering/Resolving]
  - Blood creatinine increased [Unknown]
  - Proteinuria [Unknown]
  - Renal tubular necrosis [Unknown]
  - Blood phosphorus decreased [Unknown]
  - Renal impairment [Recovering/Resolving]

NARRATIVE: CASE EVENT DATE: 201401
